FAERS Safety Report 8836100 (Version 2)
Quarter: 2013Q2

REPORT INFORMATION
  Report Type: Spontaneous
  Country: CA (occurrence: CA)
  Receive Date: 20121011
  Receipt Date: 20130408
  Transmission Date: 20140414
  Serious: Yes (Life-Threatening, Hospitalization)
  Sender: FDA-Public Use
  Company Number: CA-B.I. PHARMACEUTICALS,INC./RIDGEFIELD-2012-CN-02073CN

PATIENT
  Age: 81 Year
  Sex: Male

DRUGS (5)
  1. PRADAX [Suspect]
     Indication: ATRIAL FIBRILLATION
     Dosage: 220 MG
  2. DILTIAZEM [Concomitant]
  3. ASA [Concomitant]
  4. RAMIPRIL [Concomitant]
  5. EZETROL [Concomitant]

REACTIONS (2)
  - Gastrointestinal haemorrhage [Recovered/Resolved]
  - Transient ischaemic attack [Unknown]
